FAERS Safety Report 10168118 (Version 2)
Quarter: 2014Q2

REPORT INFORMATION
  Report Type: Report from Study
  Country: US (occurrence: US)
  Receive Date: 20140512
  Receipt Date: 20140611
  Transmission Date: 20141212
  Serious: Yes (Hospitalization, Other)
  Sender: FDA-Public Use
  Company Number: US-ACTELION-A-NJ2014-98538

PATIENT
  Age: 6 Year
  Sex: Female

DRUGS (1)
  1. ZAVESCA [Suspect]
     Indication: GAUCHER^S DISEASE
     Dosage: 100 MG, BID
     Route: 048
     Dates: start: 20111225

REACTIONS (3)
  - Eye operation [Recovering/Resolving]
  - Central venous catheter removal [Recovering/Resolving]
  - Bronchoscopy [Recovering/Resolving]
